FAERS Safety Report 5750104-6 (Version None)
Quarter: 2008Q2

REPORT INFORMATION
  Report Type: 
  Country: None (occurrence: None)
  Receive Date: 20080527
  Receipt Date: 20080515
  Transmission Date: 20081010
  Serious: Yes (Hospitalization, Other)
  Sender: FDA-Public Use
  Company Number: US-PFIZER INC-2008017518

PATIENT
  Sex: Female
  Weight: 58.5 kg

DRUGS (8)
  1. LYRICA [Suspect]
     Indication: MULTIPLE SCLEROSIS
     Dates: start: 20080101, end: 20080225
  2. LYRICA [Suspect]
     Indication: NEURALGIA
  3. ANTIDEPRESSANTS [Concomitant]
     Indication: DEPRESSION
  4. ANALGESICS [Concomitant]
     Indication: PAIN
  5. INTERFERON BETA [Concomitant]
  6. BACLOFEN [Concomitant]
  7. POTASSIUM CHLORIDE [Concomitant]
  8. LASIX [Concomitant]

REACTIONS (12)
  - ABASIA [None]
  - ACCIDENTAL OVERDOSE [None]
  - ANKLE FRACTURE [None]
  - APHONIA [None]
  - CONFUSIONAL STATE [None]
  - DYSPNOEA [None]
  - FALL [None]
  - HALLUCINATION [None]
  - HYPOAESTHESIA [None]
  - LOWER LIMB FRACTURE [None]
  - MUSCULAR WEAKNESS [None]
  - RESPIRATORY DISTRESS [None]
